FAERS Safety Report 17467389 (Version 1)
Quarter: 2020Q1

REPORT INFORMATION
  Report Type: Spontaneous
  Country: US (occurrence: US)
  Receive Date: 20200227
  Receipt Date: 20200227
  Transmission Date: 20200409
  Serious: No
  Sender: FDA-Public Use
  Company Number: US-PFIZER INC-2020085327

PATIENT
  Age: 74 Year
  Sex: Female

DRUGS (3)
  1. MORPHINE SULFATE. [Suspect]
     Active Substance: MORPHINE SULFATE
     Dosage: UNK
  2. FLURANDRENOLIDE. [Suspect]
     Active Substance: FLURANDRENOLIDE
     Dosage: UNK
  3. PHENIRAMINE [Suspect]
     Active Substance: PHENIRAMINE
     Dosage: UNK

REACTIONS (1)
  - Drug hypersensitivity [Unknown]
